FAERS Safety Report 9521565 (Version 1)
Quarter: 2013Q3

REPORT INFORMATION
  Report Type: Spontaneous
  Country: FR (occurrence: None)
  Receive Date: 20130911
  Receipt Date: 20130911
  Transmission Date: 20140515
  Serious: Yes (Hospitalization)
  Sender: FDA-Public Use
  Company Number: 1881997

PATIENT
  Age: 43 Year
  Sex: Female

DRUGS (12)
  1. CARBOPLATIN [Suspect]
     Indication: CHEMOTHERAPY
     Dosage: 800 MG MILLIGRAM(S), 1 DAY, INTRAVENOUS DRIP
     Route: 042
     Dates: start: 20120620, end: 20120620
  2. PACLITAXEL [Suspect]
     Indication: CHEMOTHERAPY
     Dosage: 145MG MILLIGRAM (S), 1 DAY, INTRAVENOUS DRIP
     Route: 042
     Dates: start: 20120620, end: 20120620
  3. DOLIPRANE [Concomitant]
  4. (DIFFU K) [Concomitant]
  5. (LOVENOX)) [Concomitant]
  6. (SOLUPRED) [Concomitant]
  7. (PRIMPERAN) [Concomitant]
  8. (LASILIX [Concomitant]
  9. (NIQUITIN [Concomitant]
  10. (NICOTINELL [Concomitant]
  11. (TRUVADA) [Concomitant]
  12. ISENTRESS) [Concomitant]

REACTIONS (14)
  - Septic shock [None]
  - Febrile neutropenia [None]
  - Haemoglobin decreased [None]
  - Tachycardia [None]
  - Productive cough [None]
  - Aspergillus test positive [None]
  - Staphylococcus test positive [None]
  - Blood pH increased [None]
  - Lung disorder [None]
  - Haemodilution [None]
  - Neoplasm [None]
  - Lymphangitis [None]
  - Hyperthermia [None]
  - Diarrhoea [None]
